FAERS Safety Report 8092911-3 (Version None)
Quarter: 2012Q1

REPORT INFORMATION
  Report Type: 
  Country: None (occurrence: None)
  Receive Date: 20120128
  Receipt Date: 20110804
  Transmission Date: 20120608
  Serious: No
  Sender: FDA-Public Use
  Company Number: US-ABBOTT-11P-163-0844216-00

PATIENT
  Age: 59 Year
  Sex: Male

DRUGS (9)
  1. METHOTREXATE [Concomitant]
     Indication: PROSTATIC SPECIFIC ANTIGEN
  2. HUMIRA [Suspect]
     Indication: PSORIATIC ARTHROPATHY
     Dates: start: 20110802
  3. METOPROLOL TARTRATE [Concomitant]
     Indication: AORTIC STENOSIS
  4. SIMVASTATIN [Concomitant]
     Indication: PROPHYLAXIS
  5. XALATAN [Concomitant]
     Indication: INTRAOCULAR PRESSURE TEST
     Dosage: TO BOTH EYES
  6. SIMVASTATIN [Concomitant]
     Indication: BLOOD CHOLESTEROL ABNORMAL
  7. COMBIGAN [Concomitant]
     Indication: INTRAOCULAR PRESSURE INCREASED
     Dosage: EYE
  8. AZOPT [Concomitant]
     Indication: INTRAOCULAR PRESSURE TEST
     Dosage: TO BOTH EYES
  9. ALLOPURINOL [Concomitant]
     Indication: GOUT

REACTIONS (1)
  - INJECTION SITE PAIN [None]
